FAERS Safety Report 16240066 (Version 1)
Quarter: 2019Q2

REPORT INFORMATION
  Report Type: Spontaneous
  Country: US (occurrence: US)
  Receive Date: 20190425
  Receipt Date: 20190425
  Transmission Date: 20190711
  Serious: No
  Sender: FDA-Public Use
  Company Number: US-ALLERGAN-1859071US

PATIENT
  Age: 10 Year
  Sex: Female

DRUGS (2)
  1. MEFLOQUINE [Concomitant]
     Active Substance: MEFLOQUINE
  2. TRIPTORELIN PAMOATE - BP [Suspect]
     Active Substance: TRIPTORELIN PAMOATE
     Indication: PRODUCT USED FOR UNKNOWN INDICATION
     Dosage: 22.5 MG, SINGLE
     Route: 030
     Dates: start: 20180620, end: 20180620

REACTIONS (2)
  - Mood altered [Unknown]
  - Somnolence [Unknown]

NARRATIVE: CASE EVENT DATE: 2018
